FAERS Safety Report 5291942-6 (Version None)
Quarter: 2007Q2

REPORT INFORMATION
  Report Type: 
  Country: None (occurrence: None)
  Receive Date: 20070410
  Receipt Date: 20070403
  Transmission Date: 20071010
  Serious: Yes (Other)
  Sender: FDA-Public Use
  Company Number: JP-AVENTIS-200710806JP

PATIENT
  Age: 56 Year
  Sex: Male

DRUGS (4)
  1. ALLEGRA [Suspect]
     Indication: RHINITIS ALLERGIC
     Route: 048
     Dates: start: 20070312, end: 20070402
  2. BETA BLOCKING AGENTS [Concomitant]
  3. CLARITIN [Concomitant]
     Indication: RHINITIS ALLERGIC
     Dosage: DOSE: 1 TABLET/DAY
     Route: 048
     Dates: start: 20070213, end: 20070311
  4. CELESTAMINE                        /00008501/ [Concomitant]
     Dosage: DOSE: 2 TABLETS/DAY
     Route: 048
     Dates: start: 20070322

REACTIONS (1)
  - ATRIAL FIBRILLATION [None]
